FAERS Safety Report 4300038-9 (Version None)
Quarter: 2004Q1

REPORT INFORMATION
  Report Type: 
  Country: None (occurrence: None)
  Receive Date: 20040220
  Receipt Date: 20020322
  Transmission Date: 20041129
  Serious: Yes (Death, Life-Threatening, Hospitalization)
  Sender: FDA-Public Use
  Company Number: PHFR2002GB01212

PATIENT
  Age: 58 Year
  Sex: Male

DRUGS (5)
  1. SIMVASTATIN [Concomitant]
     Dosage: 20MG/DAY
     Route: 048
  2. ASPIRIN [Concomitant]
     Dosage: 75MG/DAY
     Route: 048
  3. ISOSORBIDE [Concomitant]
     Dosage: 10 MG, BID
     Route: 048
  4. RAMIPRIL [Concomitant]
     Dosage: 5 MG, BID
     Route: 048
  5. CLOZARIL [Suspect]
     Indication: SCHIZOPHRENIA
     Dosage: 800MG/DAY
     Route: 048
     Dates: start: 19941031, end: 20031226

REACTIONS (11)
  - BRONCHOPNEUMONIA [None]
  - CARDIAC ARREST [None]
  - CARDIAC DISORDER [None]
  - CARDIOMEGALY [None]
  - CONGESTIVE CARDIOMYOPATHY [None]
  - ELECTROCARDIOGRAM ABNORMAL [None]
  - LEUKOCYTOSIS [None]
  - MITRAL VALVE INCOMPETENCE [None]
  - MYOCARDIAL INFARCTION [None]
  - NEUTROPHILIA [None]
  - TRICUSPID VALVE INCOMPETENCE [None]
